FAERS Safety Report 7225399-2 (Version None)
Quarter: 2011Q1

REPORT INFORMATION
  Report Type: 
  Country: None (occurrence: None)
  Receive Date: 20110113
  Receipt Date: 20101227
  Transmission Date: 20110831
  Serious: No
  Sender: FDA-Public Use
  Company Number: US-B.I. PHARMACEUTICALS,INC./RIDGEFIELD-2011-BP-00108BP

PATIENT
  Sex: Female

DRUGS (2)
  1. ZANTAC 75 [Suspect]
     Indication: GASTROOESOPHAGEAL REFLUX DISEASE
     Dosage: 300 MG
     Route: 048
     Dates: start: 20101201, end: 20101201
  2. ELAVIL [Concomitant]
     Indication: MIGRAINE

REACTIONS (1)
  - DRUG INEFFECTIVE [None]
